FAERS Safety Report 22956160 (Version 15)
Quarter: 2024Q2

REPORT INFORMATION
  Report Type: Report from Study
  Country: US (occurrence: US)
  Receive Date: 20230919
  Receipt Date: 20240628
  Transmission Date: 20240716
  Serious: Yes (Hospitalization, Other)
  Sender: FDA-Public Use
  Company Number: US-ACADIA PHARMACEUTICALS INC.-ACA-2023-TRF-003622

PATIENT
  Sex: Female

DRUGS (120)
  1. DAYBUE [Suspect]
     Active Substance: TROFINETIDE
     Indication: Rett syndrome
     Dosage: 30 MILLILITER, BID VIA G TUBE
     Dates: start: 20230816
  2. DAYBUE [Suspect]
     Active Substance: TROFINETIDE
     Dosage: 25 MILLILITER, BID VIA G TUBE
     Dates: start: 20230901
  3. DAYBUE [Suspect]
     Active Substance: TROFINETIDE
     Dosage: 30 MILLILITER, QD VIA G-TUBE
     Dates: start: 20230919
  4. DAYBUE [Suspect]
     Active Substance: TROFINETIDE
     Dosage: 30 MILLILITER, BID VIA G TUBE
  5. DAYBUE [Suspect]
     Active Substance: TROFINETIDE
     Dosage: 50 MILLILITER, BID VIA G TUBE
  6. DAYBUE [Suspect]
     Active Substance: TROFINETIDE
     Dosage: 30 MILLILITER, BID VIA G TUBE
  7. DAYBUE [Suspect]
     Active Substance: TROFINETIDE
     Dosage: UNK
     Route: 065
  8. DAYBUE [Suspect]
     Active Substance: TROFINETIDE
     Dosage: 45 MILLILITER BID VIA G TUBE
  9. DAYBUE [Suspect]
     Active Substance: TROFINETIDE
     Dosage: 35 MILLILITER BID VIA G TUBE
  10. DAYBUE [Suspect]
     Active Substance: TROFINETIDE
     Dosage: 30 MILLILITER, BID VIA G TUBE
  11. DAYBUE [Suspect]
     Active Substance: TROFINETIDE
     Dosage: 35 MILLILITER, BID VIA G TUBE
  12. DAYBUE [Suspect]
     Active Substance: TROFINETIDE
     Dosage: 30 MILLILITER, BID VIA G TUBE
  13. MEROPENEM [Suspect]
     Active Substance: MEROPENEM
  14. DIASTAT [Suspect]
     Active Substance: DIAZEPAM
     Route: 065
  15. ERTAPENEM [Suspect]
     Active Substance: ERTAPENEM
     Indication: Device related infection
     Route: 042
  16. PEPCID [Concomitant]
     Active Substance: FAMOTIDINE
     Dosage: 2.5M1 BID ONE HOUR BEFORE MEALS UP TO BID
  17. MEROPENEM [Concomitant]
     Active Substance: MEROPENEM
  18. LYRICA [Concomitant]
     Active Substance: PREGABALIN
  19. XOPENEX [Concomitant]
     Active Substance: LEVALBUTEROL HYDROCHLORIDE
     Indication: Hypoxia
     Dosage: XOPENEX NEBULIZED TREATMENT +PULMICORT 10MG 1:30 PM AND 5:30 PM AND 9:00 PM AND 12:00 AM
  20. XOPENEX [Concomitant]
     Active Substance: LEVALBUTEROL HYDROCHLORIDE
     Dosage: 1,25MG/3ML UPDRAFT Q 3-4 HRS PRN
  21. PULMICORT TURBUHALER [Concomitant]
     Active Substance: BUDESONIDE
     Dosage: 10 MG, XOPENEX NEBULIZED TREATMENT +PULMICORT 1:30 PM AND 5:30 PM AND 9:00 PM AND 12:00 AM
  22. PULMICORT TURBUHALER [Concomitant]
     Active Substance: BUDESONIDE
     Dosage: 1 MILLIGRAM
  23. VITAMIN B6 [Concomitant]
     Active Substance: PYRIDOXINE HYDROCHLORIDE
  24. ATROVENT [Concomitant]
     Active Substance: IPRATROPIUM BROMIDE
  25. VITAMIN D3 [Concomitant]
     Active Substance: CHOLECALCIFEROL
     Dosage: 50,000 UNITS ONE CAPSULE WEEKLY
  26. ZINC [Concomitant]
     Active Substance: PYRITHIONE ZINC\ZINC\ZINC CHLORIDE
  27. VITAMIN B12 [Concomitant]
     Active Substance: CYANOCOBALAMIN
  28. MUCINEX [Concomitant]
     Active Substance: GUAIFENESIN
  29. MOMETASONE FUROATE [Concomitant]
     Active Substance: MOMETASONE FUROATE
  30. VITAMINS NOS [Concomitant]
     Active Substance: VITAMINS
     Dosage: ONE DAILY
     Route: 048
  31. MAGNESIUM OXIDE [Concomitant]
     Active Substance: MAGNESIUM OXIDE
     Dosage: 500 MILLIGRAM 9:00 AM AND 6:45 PM
  32. DIFLUCAN [Concomitant]
     Active Substance: FLUCONAZOLE
     Dosage: 100 MILLIGRAM ONE TABLET 9:00 AND 6:45 PM
  33. SIMETHICONE (DIMETHICONE) [Concomitant]
     Active Substance: DIMETHICONE
     Dosage: 240-250MG ONE DAILY AND UP TO QID
  34. DIGESTIVE ENZYME [AMYLASE;LIPASE;PROTEASE NOS] [Concomitant]
     Dosage: ONE TABLET AT TID AT 9 AM AND 1:30 PM AND 6:45 PM
  35. BIOTIN [Concomitant]
     Active Substance: BIOTIN
     Dosage: 5000 MILLIGRAM, QD
  36. ALLEGRA [Concomitant]
     Active Substance: FEXOFENADINE HYDROCHLORIDE
     Dosage: 180 MILLIGRAM, QD
     Route: 048
  37. DEPO-PROVERA [Concomitant]
     Active Substance: MEDROXYPROGESTERONE ACETATE
     Dosage: EVERY 10 WEEKS
  38. GAMMAGARD [Concomitant]
     Active Substance: HUMAN IMMUNOGLOBULIN G
     Dosage: INFUSION 3 GRAMS/30M13 SITES WITH PUMP WEEKLY
  39. POTASSIUM CITRATE [Concomitant]
     Active Substance: POTASSIUM CITRATE
  40. LEUCORIN [Concomitant]
  41. LEVOCARNITINE [Concomitant]
     Active Substance: LEVOCARNITINE
  42. KEPPRA [Concomitant]
     Active Substance: LEVETIRACETAM
     Dosage: 125MG GIVE ONE AT 9:00 AM AND 250MG AT 9:00 PM
  43. OMEGA 3,6,9 [Concomitant]
  44. DIASTAT [Concomitant]
     Active Substance: DIAZEPAM
     Indication: Seizure
     Dosage: 10-12.5MG OR IN ACE. MAY REPEAT EVERY 30 MINUTES
     Route: 054
  45. ATIVAN [Concomitant]
     Active Substance: LORAZEPAM
  46. KLONOPIN [Concomitant]
     Active Substance: CLONAZEPAM
     Indication: Seizure
     Dosage: 0.5MG ODT GIVE 1/4 TO 1 TABLET BID
  47. KLONOPIN [Concomitant]
     Active Substance: CLONAZEPAM
     Indication: Agitation
  48. GENTAMICIN [Concomitant]
     Active Substance: GENTAMICIN
     Dosage: AFTER CATHETER CHANGE 15MG /30 ML NS DAILY AFTER CATHETER FILL BLADDER WITH SYRINGE AND LEAVE SOLUTI
  49. SENNA [Concomitant]
     Active Substance: SENNA LEAF\SENNOSIDES\SENNOSIDES A AND B
     Indication: Constipation
     Dosage: 8.6MG TWO TABLETS
  50. SENNA [Concomitant]
     Active Substance: SENNA LEAF\SENNOSIDES\SENNOSIDES A AND B
     Indication: Faecaloma
  51. PROBIOTICS NOS [Concomitant]
     Active Substance: PROBIOTICS NOS
     Dosage: GB ONE TO TWO DAILY
  52. TRULANCE [Concomitant]
     Active Substance: PLECANATIDE
     Indication: Constipation
     Dosage: 3 MILLIGRAM, QD
  53. BISACODYL [Concomitant]
     Active Substance: BISACODYL
     Dosage: 10 MILLIGRAM, QD
     Route: 054
  54. FLEET ENEMA [Concomitant]
     Active Substance: SODIUM PHOSPHATE, DIBASIC\SODIUM PHOSPHATE, MONOBASIC
  55. SPIRONOLACTONE [Concomitant]
     Active Substance: SPIRONOLACTONE
     Dosage: 25MG GIVE HALF TABLET OR 12.5MG MWF AT 6:45 PM
  56. APITON [Concomitant]
  57. SEROQUEL [Concomitant]
     Active Substance: QUETIAPINE FUMARATE
  58. FYCOMPA [Concomitant]
     Active Substance: PERAMPANEL
     Dosage: 2 MILLIGRAM GIVE 1/4 TABLET DAILY
  59. BENZOYL PEROXIDE\CLINDAMYCIN PHOSPHATE [Concomitant]
     Active Substance: BENZOYL PEROXIDE\CLINDAMYCIN PHOSPHATE
  60. SODIUM CHLORIDE [Concomitant]
     Active Substance: SODIUM CHLORIDE
     Dosage: 500 MILLILITER SALINE ACE FLUSH AT 9:00 AM AND 1:30 PM
  61. OMEPRAZOLE [Concomitant]
     Active Substance: DONEPEZIL HYDROCHLORIDE\OMEPRAZOLE\OMEPRAZOLE MAGNESIUM
     Dosage: 40 MILLIGRAM, QD
  62. PREGABALIN [Concomitant]
     Active Substance: PREGABALIN
     Dosage: 150MG IN AM AND 175MG AT BEDTIME
  63. ZINC GLUCONATE [Concomitant]
     Active Substance: ZINC GLUCONATE
     Indication: Infection
     Dosage: 30MG DAILY WITH EXTRA HALF TABLET
  64. BICITRA [CITRIC ACID;SODIUM CITRATE ACID] [Concomitant]
     Dosage: 40 MILLILITER, TID AT 9:00 AM AND 1:30 PM AND 6:45 PM
  65. LEUCOVORIN CALCIUM [Concomitant]
     Active Substance: LEUCOVORIN CALCIUM
     Dosage: 35 MILLIGRAM, BID
  66. BUDESONIDE [Concomitant]
     Active Substance: BUDESONIDE
     Dosage: 0.5ML/2ML BID
  67. IPRATROPIUM [Concomitant]
     Active Substance: IPRATROPIUM
     Dosage: 0.5MG/2.5ML UPDRAFT VIA NEBULIZER BID
  68. PYRIDOXINE HYDROCHLORIDE [Concomitant]
     Active Substance: PYRIDOXINE HYDROCHLORIDE
     Dosage: CO ENZYME FORM ON POD DAILY IN AM
  69. VITAMIN D2 [Concomitant]
     Active Substance: ERGOCALCIFEROL
     Dosage: 50,000 UNITS WEEKLY
  70. ACETYLCARNITINE [Concomitant]
     Active Substance: ACETYLCARNITINE
     Dosage: 1500 MILLIGRAM (750MG X 2 TABLETS), QD AT 9:00 AM
  71. PERFOROMIST [Concomitant]
     Active Substance: FORMOTEROL FUMARATE DIHYDRATE
     Indication: Respiratory distress
     Dosage: 20MCG/2M1 BID VIA NEBULIZER
  72. PERFOROMIST [Concomitant]
     Active Substance: FORMOTEROL FUMARATE DIHYDRATE
     Dosage: 1 MILLIGRAM
  73. FISH OIL [Concomitant]
     Active Substance: FISH OIL
     Dosage: ONE CAPSULE 9:00 AM AND 6:45 PM
  74. METHYLCOBALAMIN [Concomitant]
     Active Substance: METHYLCOBALAMIN
  75. KETOCONAZOLE [Concomitant]
     Active Substance: KETOCONAZOLE
     Dosage: 2% TID/ PRN WASH HEAD OR HAIR AND APPLY TOPICAL MEDICATION
     Route: 061
  76. CICLOPIROX [Concomitant]
     Active Substance: CICLOPIROX\TOCOPHEROL
     Dosage: 1 PER RINSE HAIR TWICE A WEEK
  77. BOTOX [Concomitant]
     Active Substance: BOTULINUM TOXIN TYPE A\ONABOTULINUMTOXINA
  78. TYLENOL [Concomitant]
     Active Substance: ACETAMINOPHEN
     Dosage: 500 MILLIGRAM, ONE VIA PEG ONE HOUR BEFORE GAMMA INFUSION AND THE NEXT DAY
  79. CIPRODEX [Concomitant]
     Active Substance: CIPROFLOXACIN HYDROCHLORIDE\DEXAMETHASONE
     Dosage: 2 DROPS IN EACH EAR 9:00 AM AND 9:00 PM
  80. GUAIFENESIN [Concomitant]
     Active Substance: GUAIFENESIN
     Indication: Dyspnoea
     Dosage: 400 MILLIGRAM Q 4 HOURS
  81. GUAIFENESIN [Concomitant]
     Active Substance: GUAIFENESIN
     Indication: Nasal congestion
     Dosage: 40 MILLIGRAM, 1:30 PM, 6:45 PM +12:00 AM
  82. GUAIFENESIN [Concomitant]
     Active Substance: GUAIFENESIN
     Indication: Secretion discharge
  83. SODIUM PHOSPHATE [Concomitant]
     Active Substance: SODIUM PHOSPHATE
  84. CLINDAMYCIN [Concomitant]
     Active Substance: CLINDAMYCIN
     Dosage: 1% ON BACK, SHOULDERS, CHEST AND FACE BID
     Route: 061
  85. TOLCYLEN [Concomitant]
     Active Substance: TOLNAFTATE
     Dosage: DAILY ON BIG TOENAILS
  86. APTIOM [Concomitant]
     Active Substance: ESLICARBAZEPINE ACETATE
     Dosage: 200MG GIVE 3 TABLETS OR 600 MG AT 9:00 PM
  87. QUETIAPINE [Concomitant]
     Active Substance: QUETIAPINE
     Dosage: 25 MILLIGRAM AT 9:00 PM
  88. LEVSIN [Concomitant]
     Active Substance: HYOSCYAMINE SULFATE
     Indication: Secretion discharge
     Dosage: 0.125MG ON TABLET OR 5MI TID PRN
  89. EPIPEN [Concomitant]
     Active Substance: EPINEPHRINE
     Dosage: AUTO INJECTION AS DIRECTED
  90. CLONIDINE [Concomitant]
     Active Substance: CLONIDINE
     Indication: Spontaneous bacterial peritonitis
     Dosage: 0.1MG ONE PUREE TABLET ABOVE 105
  91. CLONIDINE [Concomitant]
     Active Substance: CLONIDINE
     Indication: Autonomic nervous system imbalance
     Dosage: HALF TABLET }97MMHG AND 1/4 TABLET
  92. DIPHENHYDRAMINE [Concomitant]
     Active Substance: DIPHENHYDRAMINE
     Indication: Hypersensitivity
     Dosage: 25-50MG Q 6 HRS PRN AND POST GAMMA INFUSION
  93. ACETYLCYSTEINE [Concomitant]
     Active Substance: ACETYLCYSTEINE
     Dosage: NEBULIZER 6-10MI DAILY UP TO 3 DAYS
  94. MUPIROCIN [Concomitant]
     Active Substance: MUPIROCIN
     Dosage: 2 PER APPLY TO AFFECTED AREA BID
  95. VAGICAINE [Concomitant]
     Active Substance: BENZOCAINE\RESORCINOL
     Indication: Vulvovaginal inflammation
  96. IPRATROPIUM BROMIDE [Concomitant]
     Active Substance: IPRATROPIUM BROMIDE\IPRATROPIUM BROMIDE ANHYDROUS
     Dosage: 0.03% GIVE 2 SPRAYS TO EACH NOSTRIL BID, 0.5MG/2.5ML
     Route: 045
  97. IBUPROFEN [Concomitant]
     Active Substance: IBUPROFEN
     Indication: Pain
     Dosage: 2000 MILLIGRAM 1-3 TABLETS Q 4-6 HRS
  98. IBUPROFEN [Concomitant]
     Active Substance: IBUPROFEN
     Indication: Pyrexia
  99. VALTOCO [Concomitant]
     Active Substance: DIAZEPAM
     Dosage: 10 MILLIGRAM EACH NOSTRIL PRN
  100. HYDROCODONE BITARTRATE AND ACETAMINOPHEN [Concomitant]
     Active Substance: ACETAMINOPHEN\HYDROCODONE BITARTRATE
     Indication: Pain
     Dosage: 7.5/325MG/15ML 10ML Q 4 HOURS
  101. CYSTEX PLUS [Concomitant]
     Active Substance: METHENAMINE\SODIUM SALICYLATE
     Indication: Urinary tract pain
     Dosage: 2 TABLETS TID
  102. NYSTATIN [Concomitant]
     Active Substance: NYSTATIN
     Indication: Fungal infection
     Dosage: 10 MILLILITER, QID SWAB PRN SOLUTION
     Route: 048
  103. NYSTATIN [Concomitant]
     Active Substance: NYSTATIN
     Dosage: 100,000 UNITS CREAM OR POWDER UP TO BID
     Route: 048
  104. BLEPHAMIDE [PREDNISOLONE ACETATE;SULFACETAMIDE SODIUM] [Concomitant]
     Indication: Ear infection
     Dosage: 10 0.2% APPLY 3 DROPS IN EAR BID FOR 14 DAYS PRN
  105. ORAPRED [Concomitant]
     Active Substance: PREDNISOLONE SODIUM PHOSPHATE
     Indication: Respiratory disorder
     Dosage: 15MG/5ML 10ML Q 4 HOURS VIA NEBULIZER
  106. PREDNISONE [Concomitant]
     Active Substance: PREDNISONE
     Dosage: 10 TO 20MG UP TO 3-4 TIES A DAY
  107. REGLAN [Concomitant]
     Active Substance: METOCLOPRAMIDE HYDROCHLORIDE
     Indication: Abdominal distension
     Dosage: 10 MILLIGRAM Q 8 HRS PRN NOT MORE THAN 10 DAYS
  108. REGLAN [Concomitant]
     Active Substance: METOCLOPRAMIDE HYDROCHLORIDE
     Indication: Gastrointestinal motility disorder
  109. BENTYL [Concomitant]
     Active Substance: DICYCLOMINE HYDROCHLORIDE
     Indication: Abdominal pain
     Dosage: 20MG ONE OR 10ML Q 6 HRS PRN
  110. SUMATRIPTAN [Concomitant]
     Active Substance: SUMATRIPTAN
     Indication: Migraine
     Dosage: 100 MILLIGRAM MAY REPEAT X 1 AFTER 2 HOURS.
  111. TRIAMCINOLONE ACETONIDE [Concomitant]
     Active Substance: TRIAMCINOLONE ACETONIDE
     Indication: Skin irritation
     Dosage: 0.1% DAILY
  112. TRIAMCINOLONE ACETONIDE [Concomitant]
     Active Substance: TRIAMCINOLONE ACETONIDE
     Indication: Rash
  113. FLUTICASONE [Concomitant]
     Active Substance: FLUTICASONE
     Indication: Nasal congestion
     Dosage: USE 1-2 SPRAYS TO EACH NOSTRIL BID
  114. FLUOCINOLONE [Concomitant]
     Active Substance: FLUOCINOLONE
     Dosage: 0.01% SCALP OIL TO SCALP AT NIGHT AND LEAVE OVERNIGHT AND RINSE IN IN AM
  115. Molasses [Concomitant]
     Indication: Constipation
     Dosage: PRN
  116. Milk enema [Concomitant]
     Indication: Constipation
  117. Tiple paste [Concomitant]
     Indication: Miliaria
     Dosage: DAILY ON NECK
  118. CEFTRIAXONE [Concomitant]
     Active Substance: CEFTRIAXONE\CEFTRIAXONE SODIUM
     Dosage: 2 GRAMS IV DAILY 3 TIMES
  119. HEPARIN [Concomitant]
     Active Substance: HEPARIN SODIUM
  120. DIFICID [Concomitant]
     Active Substance: FIDAXOMICIN

REACTIONS (37)
  - Sepsis [Recovered/Resolved]
  - Positive airway pressure therapy [Not Recovered/Not Resolved]
  - Mechanical ventilation [Not Recovered/Not Resolved]
  - Urinary tract infection [Not Recovered/Not Resolved]
  - Constipation [Not Recovered/Not Resolved]
  - Urinary tract infection [Recovered/Resolved]
  - Clostridium test positive [Not Recovered/Not Resolved]
  - Pneumonia [Recovered/Resolved]
  - Lower limb fracture [Not Recovered/Not Resolved]
  - Urinary tract infection [Recovered/Resolved]
  - Adverse drug reaction [Recovered/Resolved]
  - Clostridium difficile colitis [Recovered/Resolved]
  - Tachycardia [Recovered/Resolved]
  - Dyspnoea [Recovered/Resolved]
  - Device related infection [Recovered/Resolved]
  - Seizure [Recovered/Resolved]
  - Seizure [Not Recovered/Not Resolved]
  - Seizure [Not Recovered/Not Resolved]
  - Seizure [Not Recovered/Not Resolved]
  - Underdose [Not Recovered/Not Resolved]
  - Constipation [Recovered/Resolved]
  - Central venous catheterisation [Not Recovered/Not Resolved]
  - Colostomy [Unknown]
  - Ileostomy [Unknown]
  - Inappropriate schedule of product administration [Not Recovered/Not Resolved]
  - Urinary tract infection [Not Recovered/Not Resolved]
  - Arthralgia [Not Recovered/Not Resolved]
  - Nervous system disorder [Not Recovered/Not Resolved]
  - Urinary tract infection [Recovered/Resolved]
  - Retching [Recovered/Resolved]
  - Bronchitis [Recovered/Resolved]
  - Constipation [Recovered/Resolved]
  - Constipation [Recovered/Resolved]
  - Constipation [Recovered/Resolved]
  - Sedation [Not Recovered/Not Resolved]
  - Fatigue [Not Recovered/Not Resolved]
  - Overdose [Not Recovered/Not Resolved]

NARRATIVE: CASE EVENT DATE: 20230101
